FAERS Safety Report 14424887 (Version 1)
Quarter: 2018Q1

REPORT INFORMATION
  Report Type: Spontaneous
  Country: US (occurrence: US)
  Receive Date: 20180123
  Receipt Date: 20180123
  Transmission Date: 20180509
  Serious: No
  Sender: FDA-Public Use
  Company Number: US-OTSUKA-2017_026888

PATIENT

DRUGS (1)
  1. REXULTI [Suspect]
     Active Substance: BREXPIPRAZOLE
     Indication: PRODUCT USED FOR UNKNOWN INDICATION
     Dosage: 2 MG, UNK
     Route: 065

REACTIONS (7)
  - Balance disorder [Unknown]
  - Paraesthesia [Unknown]
  - Dizziness [Unknown]
  - Off label use [Unknown]
  - Myalgia [Unknown]
  - Pain [Unknown]
  - Arthralgia [Unknown]
